FAERS Safety Report 9654715 (Version 1)
Quarter: 2013Q4

REPORT INFORMATION
  Report Type: Spontaneous
  Country: DE (occurrence: DE)
  Receive Date: 20131029
  Receipt Date: 20131029
  Transmission Date: 20140711
  Serious: Yes (Disabling)
  Sender: FDA-Public Use
  Company Number: GXKR2013DE003415

PATIENT
  Age: 69 Year
  Sex: Female

DRUGS (1)
  1. TRIAMHEXAL [Suspect]
     Indication: KELOID SCAR
     Dosage: 40 MG, ONCE/SINGLE
     Dates: start: 20120712

REACTIONS (3)
  - Telangiectasia [Not Recovered/Not Resolved]
  - Lipoatrophy [Not Recovered/Not Resolved]
  - Erythema [Not Recovered/Not Resolved]
